FAERS Safety Report 4554326-1 (Version None)
Quarter: 2004Q4

REPORT INFORMATION
  Report Type: 
  Country: None (occurrence: None)
  Receive Date: 20041222
  Receipt Date: 20041020
  Transmission Date: 20050328
  Serious: No
  Sender: FDA-Public Use
  Company Number: 209807

PATIENT
  Age: 71 Year
  Sex: Female
  Weight: 80.7 kg

DRUGS (5)
  1. AVASTIN [Suspect]
     Indication: COLORECTAL CANCER METASTATIC
     Dosage: 405 MG, Q2W, INTRAVENOUS
     Route: 042
     Dates: start: 20040520
  2. AMIODARONE (AMIODARONE HYDROCHLORIDE) [Concomitant]
  3. LIPITOR [Concomitant]
  4. LASIX [Concomitant]
  5. POTASSIUM (POTASSIUM NOS) [Concomitant]

REACTIONS (1)
  - HYPERTENSION [None]
